FAERS Safety Report 5794018-4 (Version None)
Quarter: 2008Q2

REPORT INFORMATION
  Report Type: 
  Country: None (occurrence: None)
  Receive Date: 20080627
  Receipt Date: 20080617
  Transmission Date: 20081010
  Serious: Yes (Hospitalization)
  Sender: FDA-Public Use
  Company Number: US-PFIZER INC-2008034332

PATIENT
  Sex: Female

DRUGS (8)
  1. CELEBREX [Suspect]
     Route: 048
  2. LEXAPRO [Concomitant]
  3. LEVOXYL [Concomitant]
  4. NITROFURANTOIN [Concomitant]
  5. CHLORDIAZEPOXIDE [Concomitant]
  6. FAMOTIDINE [Concomitant]
  7. LISINOPRIL [Concomitant]
  8. FEXOFENADINE [Concomitant]

REACTIONS (2)
  - APHASIA [None]
  - SWOLLEN TONGUE [None]
